FAERS Safety Report 7925646-5 (Version None)
Quarter: 2011Q4

REPORT INFORMATION
  Report Type: 
  Country: None (occurrence: None)
  Receive Date: 20111118
  Receipt Date: 20110411
  Transmission Date: 20120403
  Serious: No
  Sender: FDA-Public Use
  Company Number: US-AMGEN-USASP2011019094

PATIENT
  Sex: Female

DRUGS (8)
  1. ENBREL [Suspect]
     Indication: PRODUCT USED FOR UNKNOWN INDICATION
     Dosage: 50 MG, QWK
     Route: 058
  2. ASPIRIN [Concomitant]
     Dosage: 81 MG, UNK
  3. PREDNISONE TAB [Concomitant]
     Dosage: 5 MG, UNK
  4. VITAMIN D [Concomitant]
     Dosage: 1000 IU, UNK
  5. ARAVA [Concomitant]
     Dosage: 20 MG, UNK
  6. PRILOSEC [Concomitant]
     Dosage: 40 MG, UNK
  7. FOLIC ACID [Concomitant]
     Dosage: 1 MG, UNK
  8. PLAQUENIL [Concomitant]
     Dosage: 200 MG, UNK

REACTIONS (2)
  - INJECTION SITE HAEMORRHAGE [None]
  - INJECTION SITE HAEMATOMA [None]
